FAERS Safety Report 14286135 (Version 1)
Quarter: 2017Q4

REPORT INFORMATION
  Report Type: Spontaneous
  Country: ES (occurrence: ES)
  Receive Date: 20171214
  Receipt Date: 20171214
  Transmission Date: 20180321
  Serious: Yes (Other)
  Sender: FDA-Public Use
  Company Number: ES-ASTRAZENECA-2017SF26717

PATIENT
  Age: 71 Year
  Sex: Female
  Weight: 78 kg

DRUGS (3)
  1. SYMBICORT [Suspect]
     Active Substance: BUDESONIDE\FORMOTEROL FUMARATE DIHYDRATE
     Dosage: UNKNOWN UNKNOWN
     Route: 055
     Dates: start: 20171116
  2. ZINNAT [Suspect]
     Active Substance: CEFUROXIME AXETIL
     Route: 048
     Dates: start: 20171116
  3. PARACETAMOL [Concomitant]
     Active Substance: ACETAMINOPHEN
     Route: 048

REACTIONS (1)
  - Asphyxia [Recovered/Resolved]

NARRATIVE: CASE EVENT DATE: 20171117
